FAERS Safety Report 7450906-4 (Version None)
Quarter: 2011Q2

REPORT INFORMATION
  Report Type: 
  Country: None (occurrence: None)
  Receive Date: 20110422
  Receipt Date: 20110412
  Transmission Date: 20111010
  Serious: Yes (Other)
  Sender: FDA-Public Use
  Company Number: 891518

PATIENT
  Age: 74 Year
  Sex: Female

DRUGS (1)
  1. PACLITAXEL [Suspect]
     Indication: PRODUCT USED FOR UNKNOWN INDICATION
     Dosage: 240 MG MILLIGRAM(S),
     Dates: start: 20110331, end: 20110331

REACTIONS (4)
  - HYPERHIDROSIS [None]
  - TACHYCARDIA [None]
  - ABDOMINAL PAIN UPPER [None]
  - HYPOTENSION [None]
